FAERS Safety Report 4661799-2 (Version None)
Quarter: 2005Q2

REPORT INFORMATION
  Report Type: 
  Country: None (occurrence: None)
  Receive Date: 20050513
  Receipt Date: 20050509
  Transmission Date: 20051028
  Serious: Yes (Life-Threatening, Hospitalization)
  Sender: FDA-Public Use
  Company Number: 2005UW07199

PATIENT
  Age: 30 Year
  Sex: Female

DRUGS (6)
  1. SEROQUEL [Suspect]
     Indication: BIPOLAR DISORDER
     Route: 048
     Dates: start: 20010101, end: 20041001
  2. LEXAPRO [Suspect]
     Indication: DEPRESSION
     Route: 048
     Dates: start: 20040101
  3. LITHIUM [Suspect]
     Indication: BIPOLAR DISORDER
     Dates: start: 20041001
  4. LAMICTAL [Suspect]
     Indication: BIPOLAR DISORDER
  5. ABILIFY [Suspect]
     Indication: BIPOLAR DISORDER
     Dates: start: 20041001
  6. TRAZODONE [Suspect]
     Indication: BIPOLAR DISORDER
     Dates: start: 20010101, end: 20041001

REACTIONS (10)
  - ABNORMAL BEHAVIOUR [None]
  - DEPRESSION [None]
  - DRUG INEFFECTIVE [None]
  - INTENTIONAL MISUSE [None]
  - MANIA [None]
  - MULTIPLE DRUG OVERDOSE [None]
  - PERSONALITY CHANGE [None]
  - SOCIAL AVOIDANT BEHAVIOUR [None]
  - SUICIDE ATTEMPT [None]
  - WEIGHT INCREASED [None]
